FAERS Safety Report 10017697 (Version 1)
Quarter: 2014Q1

REPORT INFORMATION
  Report Type: Spontaneous
  Country: US (occurrence: US)
  Receive Date: 20140318
  Receipt Date: 20140318
  Transmission Date: 20141002
  Serious: Yes (Other)
  Sender: FDA-Public Use
  Company Number: US-BRISTOL-MYERS SQUIBB COMPANY-17428459

PATIENT
  Age: 68 Year
  Sex: Male
  Weight: 75.28 kg

DRUGS (2)
  1. ERBITUX SOLN FOR INF [Suspect]
     Indication: COLON CANCER
  2. XELODA [Suspect]

REACTIONS (2)
  - Acne pustular [Not Recovered/Not Resolved]
  - Myalgia [Recovered/Resolved]
